FAERS Safety Report 7770803-4 (Version None)
Quarter: 2011Q3

REPORT INFORMATION
  Report Type: 
  Country: None (occurrence: None)
  Receive Date: 20110922
  Receipt Date: 20110708
  Transmission Date: 20111222
  Serious: No
  Sender: FDA-Public Use
  Company Number: US-ASTRAZENECA-2011SE41370

PATIENT

DRUGS (10)
  1. IMITREX [Concomitant]
  2. DALMANE [Concomitant]
  3. CLONAZEPAM [Concomitant]
  4. PROZAC [Concomitant]
  5. SEROQUEL [Suspect]
     Route: 048
  6. LUVOX [Concomitant]
  7. HALDAHL [Concomitant]
  8. ZOLOFT [Concomitant]
  9. WELLBUTRIN [Concomitant]
  10. COGENTION [Concomitant]

REACTIONS (1)
  - CONDITION AGGRAVATED [None]
